FAERS Safety Report 12987929 (Version 1)
Quarter: 2016Q4

REPORT INFORMATION
  Report Type: Spontaneous
  Country: US (occurrence: US)
  Receive Date: 20161130
  Receipt Date: 20161130
  Transmission Date: 20170207
  Serious: No
  Sender: FDA-Public Use
  Company Number: US-009507513-1611USA010912

PATIENT
  Age: 66 Year
  Sex: Male

DRUGS (3)
  1. ASMANEX HFA [Suspect]
     Active Substance: MOMETASONE FUROATE
     Dosage: UNK
     Route: 055
     Dates: start: 201610
  2. PERTUSSIN (DEXTROMETHORPHAN HYDROBROMIDE) [Suspect]
     Active Substance: DEXTROMETHORPHAN HYDROBROMIDE
     Indication: THROAT IRRITATION
     Dosage: UNK
     Dates: start: 2016
  3. PREDNISOLONE. [Suspect]
     Active Substance: PREDNISOLONE
     Indication: THROAT IRRITATION
     Dosage: UNK
     Dates: start: 2016

REACTIONS (2)
  - Vision blurred [Not Recovered/Not Resolved]
  - Throat irritation [Not Recovered/Not Resolved]

NARRATIVE: CASE EVENT DATE: 2016
